FAERS Safety Report 15219696 (Version 9)
Quarter: 2020Q1

REPORT INFORMATION
  Report Type: Report from Study
  Country: None (occurrence: NL)
  Receive Date: 20180731
  Receipt Date: 20200314
  Transmission Date: 20200409
  Serious: Yes (Life-Threatening, Hospitalization, Other)
  Sender: FDA-Public Use
  Company Number: NL-ABBVIE-16P-114-1653803-00

PATIENT
  Age: 76 Year
  Sex: Male
  Weight: 69 kg

DRUGS (10)
  1. DUODOPA [Suspect]
     Active Substance: CARBIDOPA\LEVODOPA
     Indication: PARKINSON^S DISEASE
     Dosage: MD 15.8, CD 3.4, ED 2.0 ML
     Route: 050
     Dates: start: 201404
  2. RIVASTIGMINE. [Concomitant]
     Active Substance: RIVASTIGMINE
     Indication: DEMENTIA
     Dosage: 4.6/HOUR DAILY
     Dates: start: 20190801
  3. CLOZAPINE. [Concomitant]
     Active Substance: CLOZAPINE
     Indication: HALLUCINATION
     Dosage: 2+3 OF 6.25 MG
     Route: 048
     Dates: start: 20190719
  4. GUTRON [Concomitant]
     Active Substance: MIDODRINE
     Indication: PRODUCT USED FOR UNKNOWN INDICATION
     Dosage: 2 X 0.5
     Dates: start: 20191224
  5. MADOPAR [Concomitant]
     Active Substance: BENSERAZIDE HYDROCHLORIDE\LEVODOPA
     Indication: PARKINSON^S DISEASE
     Dosage: 1 X 1
     Route: 048
     Dates: start: 20180301
  6. MOVICOLON [Concomitant]
     Active Substance: POLYETHYLENE GLYCOL 3350\POTASSIUM CHLORIDE\SODIUM BICARBONATE\SODIUM CHLORIDE
     Indication: DEFAECATION DISORDER
     Dosage: FREQUENCY TEXT: DAILY
  7. DABIGATRAN [Concomitant]
     Active Substance: DABIGATRAN
     Indication: ATRIAL FIBRILLATION
     Route: 048
  8. LEVODOPA [Concomitant]
     Active Substance: LEVODOPA
     Indication: PARKINSON^S DISEASE
     Dosage: 125   DAILY
     Route: 048
  9. EXELON [Concomitant]
     Active Substance: RIVASTIGMINE TARTRATE
     Indication: PRODUCT USED FOR UNKNOWN INDICATION
  10. DUODOPA [Suspect]
     Active Substance: CARBIDOPA\LEVODOPA
     Dosage: MD 5.8 CD 3.0 ED 4.016 HOUR ADMINISTRATION
     Route: 050

REACTIONS (45)
  - Dehydration [Not Recovered/Not Resolved]
  - Weight decreased [Not Recovered/Not Resolved]
  - Intentional medical device removal by patient [Not Recovered/Not Resolved]
  - Salivary hypersecretion [Not Recovered/Not Resolved]
  - Memory impairment [Not Recovered/Not Resolved]
  - Dizziness [Not Recovered/Not Resolved]
  - Confusional state [Not Recovered/Not Resolved]
  - Hallucination [Not Recovered/Not Resolved]
  - Hallucination, visual [Recovering/Resolving]
  - Stoma site discharge [Not Recovered/Not Resolved]
  - Suicidal ideation [Recovered/Resolved]
  - Muscle rigidity [Not Recovered/Not Resolved]
  - Weight decreased [Recovered/Resolved]
  - Abnormal dreams [Recovered/Resolved]
  - Infection [Not Recovered/Not Resolved]
  - Tension [Not Recovered/Not Resolved]
  - Bowel movement irregularity [Not Recovered/Not Resolved]
  - Movement disorder [Recovering/Resolving]
  - Parkinsonian rest tremor [Not Recovered/Not Resolved]
  - Dementia [Unknown]
  - Dyskinesia [Recovering/Resolving]
  - Hyperkinesia [Not Recovered/Not Resolved]
  - Therapeutic product effect variable [Not Recovered/Not Resolved]
  - Saliva altered [Not Recovered/Not Resolved]
  - Atrial fibrillation [Unknown]
  - Asthenia [Not Recovered/Not Resolved]
  - Bradykinesia [Not Recovered/Not Resolved]
  - Freezing phenomenon [Not Recovered/Not Resolved]
  - Speech disorder [Not Recovered/Not Resolved]
  - Tremor [Not Recovered/Not Resolved]
  - Fall [Not Recovered/Not Resolved]
  - Headache [Not Recovered/Not Resolved]
  - Drug ineffective [Recovered/Resolved]
  - Depressed mood [Not Recovered/Not Resolved]
  - Weight increased [Recovered/Resolved]
  - Hallucination [Recovered/Resolved]
  - Stoma site erythema [Not Recovered/Not Resolved]
  - On and off phenomenon [Unknown]
  - Therapeutic product effect delayed [Unknown]
  - Psychotic disorder [Recovered/Resolved]
  - Incorrect route of product administration [Recovered/Resolved]
  - Toe walking [Not Recovered/Not Resolved]
  - Hypophagia [Unknown]
  - Poor quality sleep [Recovering/Resolving]
  - Hypotension [Recovering/Resolving]

NARRATIVE: CASE EVENT DATE: 2015
